FAERS Safety Report 9836475 (Version 1)
Quarter: 2014Q1

REPORT INFORMATION
  Report Type: Spontaneous
  Country: US (occurrence: US)
  Receive Date: 20140123
  Receipt Date: 20140123
  Transmission Date: 20141002
  Serious: Yes (Death, Other)
  Sender: FDA-Public Use
  Company Number: US-BRISTOL-MYERS SQUIBB COMPANY-20049839

PATIENT
  Age: 67 Year
  Sex: Male

DRUGS (1)
  1. YERVOY [Suspect]
     Indication: NEOPLASM MALIGNANT
     Route: 042
     Dates: end: 201312

REACTIONS (2)
  - Death [Fatal]
  - Blood glucose increased [Unknown]
